FAERS Safety Report 7719114-3 (Version None)
Quarter: 2011Q3

REPORT INFORMATION
  Report Type: 
  Country: None (occurrence: None)
  Receive Date: 20110824
  Receipt Date: 20110810
  Transmission Date: 20111222
  Serious: Yes (Other)
  Sender: FDA-Public Use
  Company Number: DE-AGG-08-2011-0138

PATIENT

DRUGS (1)
  1. TIROFIBAN HYDROCHLORIDE [Suspect]
     Indication: THROMBOSIS PROPHYLAXIS
     Dosage: 0.1 MCG/KG/MIN ; 0.1 MCG/KG/MIN INTRAVENOUS (NOT OTHERWISE SPECIFIED)
     Route: 042
     Dates: start: 20110730, end: 20110804

REACTIONS (1)
  - TACHYPHYLAXIS [None]
